FAERS Safety Report 10102201 (Version 1)
Quarter: 2014Q2

REPORT INFORMATION
  Report Type: Spontaneous
  Country: US (occurrence: None)
  Receive Date: 20140423
  Receipt Date: 20140423
  Transmission Date: 20141212
  Serious: No
  Sender: FDA-Public Use
  Company Number: None

PATIENT
  Age: 51 Year
  Sex: Female

DRUGS (1)
  1. HUMIRA 40MG ABB VIE [Suspect]
     Indication: COLITIS ULCERATIVE
     Dosage: SQ, EVERY 14 DAY
     Route: 058
     Dates: start: 20131204

REACTIONS (3)
  - Alopecia [None]
  - Fatigue [None]
  - Anaemia [None]
